FAERS Safety Report 5061496-8 (Version None)
Quarter: 2006Q3

REPORT INFORMATION
  Report Type: 
  Country: None (occurrence: None)
  Receive Date: 20060720
  Receipt Date: 20060714
  Transmission Date: 20061208
  Serious: Yes (Hospitalization, Other)
  Sender: FDA-Public Use
  Company Number: HQWYE114017SEP04

PATIENT
  Age: 56 Year
  Sex: Male
  Weight: 76 kg

DRUGS (5)
  1. RAPAMUNE [Suspect]
     Indication: PROPHYLAXIS AGAINST TRANSPLANT REJECTION
     Dosage: 16 MG 1X PER 1 DAY, ORAL
     Route: 048
     Dates: start: 20040730, end: 20041018
  2. PROGRAF [Suspect]
     Indication: PROPHYLAXIS AGAINST TRANSPLANT REJECTION
     Dosage: ORAL
     Route: 048
  3. METOPROLOL (METOPROLOL) [Concomitant]
  4. ZENAPAX [Concomitant]
  5. CORTICOSTEROID NOS (CORTICOSTEROID NOS) [Concomitant]

REACTIONS (10)
  - BLOOD CREATININE INCREASED [None]
  - BLOOD UREA INCREASED [None]
  - DRUG TOXICITY [None]
  - DYSPNOEA EXERTIONAL [None]
  - FLUID OVERLOAD [None]
  - HAEMATOCRIT DECREASED [None]
  - HAEMOGLOBIN DECREASED [None]
  - INFLAMMATION [None]
  - PLATELET COUNT DECREASED [None]
  - RENAL DISORDER [None]
